FAERS Safety Report 8020198-6 (Version None)
Quarter: 2012Q1

REPORT INFORMATION
  Report Type: 
  Country: None (occurrence: None)
  Receive Date: 20120103
  Receipt Date: 20111222
  Transmission Date: 20120608
  Serious: Yes (Death)
  Sender: FDA-Public Use
  Company Number: US-CELGENEUS-163-21880-11111020

PATIENT
  Sex: Female

DRUGS (21)
  1. DEXAMETHASONE [Concomitant]
     Route: 065
  2. PERCOCET [Concomitant]
     Route: 065
  3. ALLOPURINOL [Concomitant]
     Route: 065
  4. ASPIRIN [Concomitant]
     Route: 065
  5. LASIX [Concomitant]
     Route: 065
  6. REVLIMID [Suspect]
     Indication: MULTIPLE MYELOMA
     Dates: start: 20110913, end: 20111017
  7. ADVAIR DISKUS 100/50 [Concomitant]
     Route: 065
  8. CEPHALEXIN [Concomitant]
     Route: 065
  9. CLONIDINE [Concomitant]
     Route: 065
  10. RESTASIS [Concomitant]
     Route: 065
  11. PAMIDRONATE DISODIUM [Concomitant]
     Route: 065
  12. METFORMIN HCL [Concomitant]
     Route: 065
  13. PENICILLIN [Concomitant]
     Route: 065
  14. ATENOLOL [Concomitant]
     Route: 065
  15. BACLOFEN [Concomitant]
     Route: 065
  16. FERROUS SULFATE TAB [Concomitant]
     Route: 065
  17. LYRICA [Concomitant]
     Route: 065
  18. SPIRIVA [Concomitant]
     Route: 065
  19. FOSAMAX [Concomitant]
     Route: 065
  20. LISINOPRIL [Concomitant]
     Route: 065
  21. VERAPAMIL [Concomitant]
     Route: 065

REACTIONS (1)
  - PNEUMONIA [None]
